FAERS Safety Report 7525406-3 (Version None)
Quarter: 2011Q2

REPORT INFORMATION
  Report Type: 
  Country: None (occurrence: None)
  Receive Date: 20110606
  Receipt Date: 20110525
  Transmission Date: 20111010
  Serious: Yes (Other)
  Sender: FDA-Public Use
  Company Number: GB-PFIZER INC-2011077664

PATIENT
  Age: 57 Year
  Sex: Male

DRUGS (10)
  1. DAUNORUBICIN HCL [Suspect]
     Dosage: 50 MG/M2, 1X/DAY
     Dates: start: 20110204, end: 20110304
  2. AMLODIPINE [Concomitant]
     Dosage: 5 MG, UNK
     Dates: start: 20110125, end: 20110223
  3. LENOGRASTIM [Concomitant]
     Dosage: 20 MG, UNK
     Dates: start: 20110207, end: 20110211
  4. MIRTAZAPINE [Concomitant]
     Dosage: 15 MG, UNK
     Dates: start: 20110210
  5. EVEROLIMUS [Suspect]
     Dosage: 10 MG, 1X/DAY
     Dates: start: 20110204, end: 20110304
  6. RAMIPRIL [Concomitant]
     Dosage: 5 MG, UNK
     Dates: start: 20110125, end: 20110223
  7. OMEPRAZOLE [Concomitant]
     Dosage: 20 MG, UNK
     Dates: start: 20110207, end: 20110223
  8. CYTARABINE [Suspect]
     Dosage: 100 MG/M2, 2X/DAY
     Dates: start: 20110204, end: 20110304
  9. GEMTUZUMAB OZOGAMICIN [Suspect]
     Dosage: 3 MG/M2, SINGLE
     Dates: start: 20110204, end: 20110304
  10. METFORMIN [Concomitant]
     Dosage: 500 MG, UNK
     Dates: start: 20110125, end: 20110224

REACTIONS (1)
  - RENAL FAILURE [None]
